FAERS Safety Report 6327531-1 (Version None)
Quarter: 2009Q3

REPORT INFORMATION
  Report Type: 
  Country: None (occurrence: None)
  Receive Date: 20090825
  Receipt Date: 20090819
  Transmission Date: 20100115
  Serious: Yes (Disabling)
  Sender: FDA-Public Use
  Company Number: PHHY2009GB35339

PATIENT
  Age: 58 Year
  Sex: Female

DRUGS (3)
  1. CYCLOSPORINE [Suspect]
     Indication: NAIL PSORIASIS
     Dosage: 150 MG, QD
     Route: 048
     Dates: start: 19980923, end: 20090429
  2. AMLODIPINE [Concomitant]
  3. HYDROCHLOROTHIAZIDE W/VALSARTAN [Concomitant]

REACTIONS (3)
  - ACTIVITIES OF DAILY LIVING IMPAIRED [None]
  - PHYSICAL DISABILITY [None]
  - SENSORY LOSS [None]
